FAERS Safety Report 10662741 (Version 2)
Quarter: 2015Q2

REPORT INFORMATION
  Report Type: Spontaneous
  Country: US (occurrence: US)
  Receive Date: 20141218
  Receipt Date: 20150408
  Transmission Date: 20150821
  Serious: Yes (Other)
  Sender: FDA-Public Use
  Company Number: US-BAYER-2014-184723

PATIENT
  Age: 39 Year
  Sex: Female
  Weight: 74.1 kg

DRUGS (4)
  1. MIRENA [Suspect]
     Active Substance: LEVONORGESTREL
     Indication: CONTRACEPTION
     Dosage: 20 MCG/24HR, CONT
     Route: 015
     Dates: start: 20140219, end: 20150109
  2. TOPAMAX [Concomitant]
     Active Substance: TOPIRAMATE
     Dosage: 3 DF, QD AT BEDTIME
  3. MIRENA [Suspect]
     Active Substance: LEVONORGESTREL
     Indication: DYSMENORRHOEA
  4. MIRENA [Suspect]
     Active Substance: LEVONORGESTREL
     Indication: MENORRHAGIA

REACTIONS (3)
  - Genital haemorrhage [None]
  - Device expulsion [Recovered/Resolved]
  - Abdominal pain lower [None]

NARRATIVE: CASE EVENT DATE: 2014
